FAERS Safety Report 20837595 (Version 2)
Quarter: 2022Q2

REPORT INFORMATION
  Report Type: Spontaneous
  Country: US (occurrence: US)
  Receive Date: 20220517
  Receipt Date: 20220526
  Transmission Date: 20220721
  Serious: No
  Sender: FDA-Public Use
  Company Number: US-ORGANON-O2204USA002103

PATIENT
  Age: 45 Year
  Sex: Male
  Weight: 84.807 kg

DRUGS (5)
  1. ASMANEX [Suspect]
     Active Substance: MOMETASONE FUROATE
     Indication: Asthma
     Dosage: 2 INHALATIONS (PUFFS) OF 220 MICROGRAM ONCE OR TWICE DAILY (60 DOSE UNITS)
     Dates: start: 20220422, end: 20220422
  2. MONTELUKAST [Concomitant]
     Active Substance: MONTELUKAST SODIUM
     Dosage: 10 MILLIGRAM, ONCE A DAY(QD) PER ORAL
     Route: 048
  3. ALBUTEROL SULFATE [Concomitant]
     Active Substance: ALBUTEROL SULFATE
     Dosage: 90 MCG PER INHALATION 1-2 PUFFS BID PRN
  4. CETIRIZINE HYDROCHLORIDE [Concomitant]
     Active Substance: CETIRIZINE HYDROCHLORIDE
     Dosage: 10 MILLIGRAM, ONCE A DAY (QD)
  5. FLUTICASONE [Concomitant]
     Active Substance: FLUTICASONE
     Dosage: 2 SPRAYS (DOSAGE FORM) PER NOSTRIL ONCE A DAY

REACTIONS (4)
  - Asthma exercise induced [Recovered/Resolved]
  - Device malfunction [Unknown]
  - Device difficult to use [Unknown]
  - Product dose omission issue [Unknown]

NARRATIVE: CASE EVENT DATE: 20220422
